FAERS Safety Report 9077044 (Version 1)
Quarter: 2013Q1

REPORT INFORMATION
  Report Type: Report from Study
  Country: US (occurrence: US)
  Receive Date: 20130129
  Receipt Date: 20130129
  Transmission Date: 20140127
  Serious: Yes (Other)
  Sender: FDA-Public Use
  Company Number: US-ABBOTT-12P-163-0898866-00

PATIENT
  Age: 33 None
  Sex: Female
  Weight: 84.44 kg

DRUGS (1)
  1. HUMIRA 40 MG/0.8 ML PEN [Suspect]
     Indication: CROHN^S DISEASE
     Dates: start: 201107

REACTIONS (6)
  - Foot operation [Unknown]
  - Back pain [Unknown]
  - Abdominal pain upper [Unknown]
  - Vomiting [Recovered/Resolved]
  - Diarrhoea [Unknown]
  - Abdominal pain [Unknown]
